FAERS Safety Report 9172157 (Version 1)
Quarter: 2013Q1

REPORT INFORMATION
  Report Type: Spontaneous
  Country: US (occurrence: US)
  Receive Date: 20130319
  Receipt Date: 20130319
  Transmission Date: 20140127
  Serious: Yes (Hospitalization)
  Sender: FDA-Public Use
  Company Number: US-BAXTER-2013BAX008872

PATIENT
  Sex: Male

DRUGS (2)
  1. DIANEAL LOW CALCIUM [Suspect]
     Indication: PERITONEAL DIALYSIS
     Dosage: 11.9 L
     Route: 033
     Dates: start: 20130205
  2. NORVASC [Suspect]
     Indication: HYPERTENSION
     Route: 065

REACTIONS (2)
  - Accidental overdose [Unknown]
  - No adverse event [Unknown]
